FAERS Safety Report 19313658 (Version 4)
Quarter: 2021Q2

REPORT INFORMATION
  Report Type: Other
  Country: GB (occurrence: GB)
  Receive Date: 20210527
  Receipt Date: 20210630
  Transmission Date: 20210717
  Serious: Yes (Other)
  Sender: FDA-Public Use
  Company Number: GB-STRIDES ARCOLAB LIMITED-2021SP005840

PATIENT
  Age: 72 Year
  Sex: Male

DRUGS (5)
  1. DEGARELIX [Concomitant]
     Active Substance: DEGARELIX
     Indication: HORMONE THERAPY
     Dosage: 80 MILLIGRAM PER MONTH
     Route: 058
  2. ABIRATERONE ACETATE. [Suspect]
     Active Substance: ABIRATERONE ACETATE
     Indication: PROSTATE CANCER
     Dosage: 1000 MILLIGRAM PER DAY, TABLET
     Route: 048
     Dates: start: 20210113
  3. INDAPAMIDE. [Suspect]
     Active Substance: INDAPAMIDE
     Indication: HYPERTENSION
     Dosage: 2.5 MILLIGRAM; FREQ UNK
     Route: 065
     Dates: start: 202106
  4. PREDNISOLONE. [Suspect]
     Active Substance: PREDNISOLONE
     Indication: PROSTATE CANCER
     Dosage: 5 MILLIGRAM PER DAY
     Route: 048
     Dates: start: 20210113
  5. AMLODIPINE [Concomitant]
     Active Substance: AMLODIPINE BESYLATE
     Indication: HYPERTENSION
     Dosage: UNK
     Route: 048

REACTIONS (10)
  - Peripheral swelling [Recovered/Resolved]
  - Pruritus [Unknown]
  - Blood potassium decreased [Unknown]
  - Alanine aminotransferase increased [Unknown]
  - Paraesthesia [Unknown]
  - Feeling cold [Unknown]
  - Rash pruritic [Unknown]
  - Joint swelling [Recovered/Resolved]
  - Abdominal discomfort [Unknown]
  - Blood bilirubin increased [Recovered/Resolved]

NARRATIVE: CASE EVENT DATE: 2021
